FAERS Safety Report 10237749 (Version 25)
Quarter: 2015Q4

REPORT INFORMATION
  Report Type: Report from Study
  Country: TR (occurrence: TR)
  Receive Date: 20140616
  Receipt Date: 20151126
  Transmission Date: 20160304
  Serious: Yes (Hospitalization)
  Sender: FDA-Public Use
  Company Number: TR-ROCHE-1404346

PATIENT
  Age: 69 Year
  Sex: Female
  Weight: 55.3 kg

DRUGS (88)
  1. OBINUTUZUMAB [Suspect]
     Active Substance: OBINUTUZUMAB
     Dosage: INFUSION RATE: 100 (FROM 10:00 TO 13:30 HOURS)
     Route: 042
     Dates: start: 20140401, end: 20140401
  2. OBINUTUZUMAB [Suspect]
     Active Substance: OBINUTUZUMAB
     Dosage: INFUSION RATE: 100 (FROM 10:00 TO 13:30 HOURS)
     Route: 042
     Dates: start: 20140429, end: 20140429
  3. OBINUTUZUMAB [Suspect]
     Active Substance: OBINUTUZUMAB
     Dosage: INFUSION RATE: 100 (FROM 10:00 TO 13:30 HOURS)
     Route: 042
     Dates: start: 20140527, end: 20140527
  4. AVIL [Concomitant]
     Active Substance: PHENIRAMINE
     Route: 042
     Dates: start: 20140429, end: 20140430
  5. RANITIDINE [Concomitant]
     Active Substance: RANITIDINE\RANITIDINE HYDROCHLORIDE
     Route: 042
     Dates: start: 20140528, end: 20140528
  6. GRANISETRON [Concomitant]
     Active Substance: GRANISETRON
     Route: 042
     Dates: start: 20140218, end: 20140218
  7. GRANISETRON [Concomitant]
     Active Substance: GRANISETRON
     Route: 042
     Dates: start: 20140707, end: 20140707
  8. DUPHALAC [Concomitant]
     Active Substance: LACTULOSE
     Route: 048
     Dates: start: 20140207, end: 20140210
  9. METOKLOPRAMID HIDROKLORUR [Concomitant]
     Indication: PROPHYLAXIS
     Route: 048
     Dates: start: 20140708, end: 20140708
  10. OMNIPAQUE [Concomitant]
     Active Substance: IOHEXOL
     Dosage: STRENGTH: 350MG/ML
     Route: 042
     Dates: start: 20150126, end: 20150126
  11. OMNIPAQUE [Concomitant]
     Active Substance: IOHEXOL
     Dosage: STRENGTH: 350MG/ML
     Route: 042
     Dates: start: 20150422, end: 20150422
  12. OTRIVINE [Concomitant]
     Route: 050
     Dates: start: 20141111, end: 20141118
  13. OBINUTUZUMAB [Suspect]
     Active Substance: OBINUTUZUMAB
     Dosage: INFUSION RATE: 100 (FROM 10:00 TO 13:30 HOURS)
     Route: 042
     Dates: start: 20140707, end: 20140707
  14. DEKORT [Concomitant]
     Active Substance: DEXAMETHASONE
     Route: 042
     Dates: start: 20140707, end: 20140707
  15. DEKORT [Concomitant]
     Active Substance: DEXAMETHASONE
     Route: 042
     Dates: start: 20140708, end: 20140708
  16. AVIL [Concomitant]
     Active Substance: PHENIRAMINE
     Route: 042
     Dates: start: 20140211, end: 20140211
  17. RANITIDINE [Concomitant]
     Active Substance: RANITIDINE\RANITIDINE HYDROCHLORIDE
     Route: 042
     Dates: start: 20140218, end: 20140218
  18. RANITIDINE [Concomitant]
     Active Substance: RANITIDINE\RANITIDINE HYDROCHLORIDE
     Route: 042
     Dates: start: 20140304, end: 20140304
  19. GRANISETRON [Concomitant]
     Active Substance: GRANISETRON
     Route: 042
     Dates: start: 20140401, end: 20140402
  20. GRANISETRON [Concomitant]
     Active Substance: GRANISETRON
     Route: 042
     Dates: start: 20140429, end: 20140430
  21. GRANISETRON [Concomitant]
     Active Substance: GRANISETRON
     Route: 042
     Dates: start: 20140527, end: 20140528
  22. DICLOFENAC SODIUM. [Concomitant]
     Active Substance: DICLOFENAC SODIUM
     Indication: PROPHYLAXIS
     Route: 048
     Dates: start: 20140204, end: 20140313
  23. UROGRAFIN [Concomitant]
     Active Substance: DIATRIZOATE MEGLUMINE\DIATRIZOATE SODIUM
     Route: 048
     Dates: start: 20140808, end: 20140808
  24. UROGRAFIN [Concomitant]
     Active Substance: DIATRIZOATE MEGLUMINE\DIATRIZOATE SODIUM
     Route: 048
     Dates: start: 20140929, end: 20140929
  25. UROGRAFIN [Concomitant]
     Active Substance: DIATRIZOATE MEGLUMINE\DIATRIZOATE SODIUM
     Route: 048
     Dates: start: 20150422, end: 20150422
  26. TRAMADOL HYDROCHLORIDE. [Concomitant]
     Active Substance: TRAMADOL HYDROCHLORIDE
     Route: 042
     Dates: start: 20140616, end: 20140616
  27. TRAMADOL HYDROCHLORIDE. [Concomitant]
     Active Substance: TRAMADOL HYDROCHLORIDE
     Route: 042
     Dates: start: 20140622, end: 20140622
  28. OBINUTUZUMAB [Suspect]
     Active Substance: OBINUTUZUMAB
     Dosage: INFUSION RATE: 100 (FROM 10:00 TO 13:30 HOURS)
     Route: 042
     Dates: start: 20140304, end: 20140304
  29. BENDAMUSTINE [Suspect]
     Active Substance: BENDAMUSTINE
     Dosage: INFUSION RATE: 138 (FROM 13:30 TO 14:30 HOURS)
     Route: 042
     Dates: start: 20140304, end: 20140304
  30. BENDAMUSTINE [Suspect]
     Active Substance: BENDAMUSTINE
     Dosage: INFUSION RATE: 138 (FROM 13:30 TO 14:30 HOURS)
     Route: 042
     Dates: start: 20140305, end: 20140305
  31. DEKORT [Concomitant]
     Active Substance: DEXAMETHASONE
     Route: 042
     Dates: start: 20140205, end: 20140205
  32. DEKORT [Concomitant]
     Active Substance: DEXAMETHASONE
     Route: 042
     Dates: start: 20140218, end: 20140218
  33. DEKORT [Concomitant]
     Active Substance: DEXAMETHASONE
     Route: 042
     Dates: start: 20140305, end: 20140305
  34. DEKORT [Concomitant]
     Active Substance: DEXAMETHASONE
     Route: 042
     Dates: start: 20140429, end: 20140429
  35. AVIL [Concomitant]
     Active Substance: PHENIRAMINE
     Indication: PROPHYLAXIS
     Route: 042
     Dates: start: 20140204, end: 20140205
  36. AVIL [Concomitant]
     Active Substance: PHENIRAMINE
     Route: 042
     Dates: start: 20140218, end: 20140218
  37. RANITIDINE [Concomitant]
     Active Substance: RANITIDINE\RANITIDINE HYDROCHLORIDE
     Route: 042
     Dates: start: 20140305, end: 20140305
  38. METHYLPREDNISOLONE ACEPONATE [Concomitant]
     Active Substance: METHYLPREDNISOLONE ACEPONATE
     Route: 061
     Dates: start: 20140318, end: 20140415
  39. OBINUTUZUMAB [Suspect]
     Active Substance: OBINUTUZUMAB
     Dosage: INFUSION RATE: 100 (FROM 09:35 TO 13:05 HOURS)
     Route: 042
     Dates: start: 20140211, end: 20140211
  40. BENDAMUSTINE [Suspect]
     Active Substance: BENDAMUSTINE
     Dosage: INFUSION RATE: 135 (FROM 15:00 TO 16:00 HOURS)
     Route: 042
     Dates: start: 20140205, end: 20140205
  41. BENDAMUSTINE [Suspect]
     Active Substance: BENDAMUSTINE
     Dosage: INFUSION RATE: 270 (FROM 13:30 TO 14:30 HOURS)
     Route: 042
     Dates: start: 20140401, end: 20140401
  42. BENDAMUSTINE [Suspect]
     Active Substance: BENDAMUSTINE
     Dosage: INFUSION RATE: 136 (FROM 08:30 TO 09:30 HOURS)
     Route: 042
     Dates: start: 20140430, end: 20140430
  43. DEKORT [Concomitant]
     Active Substance: DEXAMETHASONE
     Indication: PROPHYLAXIS
     Route: 042
     Dates: start: 20140204, end: 20140204
  44. DEKORT [Concomitant]
     Active Substance: DEXAMETHASONE
     Route: 042
     Dates: start: 20140211, end: 20140211
  45. DEKORT [Concomitant]
     Active Substance: DEXAMETHASONE
     Route: 042
     Dates: start: 20140304, end: 20140304
  46. AVIL [Concomitant]
     Active Substance: PHENIRAMINE
     Route: 042
     Dates: start: 20140707, end: 20140708
  47. RANITIDINE [Concomitant]
     Active Substance: RANITIDINE\RANITIDINE HYDROCHLORIDE
     Indication: PROPHYLAXIS
     Route: 042
     Dates: start: 20140204, end: 20140204
  48. RANITIDINE [Concomitant]
     Active Substance: RANITIDINE\RANITIDINE HYDROCHLORIDE
     Route: 042
     Dates: start: 20140205, end: 20140205
  49. RANITIDINE [Concomitant]
     Active Substance: RANITIDINE\RANITIDINE HYDROCHLORIDE
     Route: 042
     Dates: start: 20140211, end: 20140211
  50. UROGRAFIN [Concomitant]
     Active Substance: DIATRIZOATE MEGLUMINE\DIATRIZOATE SODIUM
     Route: 048
     Dates: start: 20140502, end: 20140502
  51. CONTRAMAL [Concomitant]
     Active Substance: TRAMADOL HYDROCHLORIDE
     Dosage: CONTRAMAL RETARD
     Route: 042
     Dates: start: 20150208, end: 20150208
  52. BENDAMUSTINE [Suspect]
     Active Substance: BENDAMUSTINE
     Dosage: INFUSION RATE: 136 (FROM 13:30 TO 14:30 HOURS)
     Route: 042
     Dates: start: 20140708, end: 20140708
  53. RANITIDINE [Concomitant]
     Active Substance: RANITIDINE\RANITIDINE HYDROCHLORIDE
     Route: 042
     Dates: start: 20140402, end: 20140402
  54. RANITIDINE [Concomitant]
     Active Substance: RANITIDINE\RANITIDINE HYDROCHLORIDE
     Route: 042
     Dates: start: 20140707, end: 20140708
  55. ALLOPURINOL. [Concomitant]
     Active Substance: ALLOPURINOL
     Indication: PROPHYLAXIS
     Route: 048
     Dates: start: 20140204, end: 20140213
  56. OMNIPAQUE [Concomitant]
     Active Substance: IOHEXOL
     Route: 042
     Dates: start: 20140502, end: 20140502
  57. MONUROL [Concomitant]
     Active Substance: FOSFOMYCIN TROMETHAMINE
     Route: 048
     Dates: start: 20141111, end: 20141112
  58. BENDAMUSTINE [Suspect]
     Active Substance: BENDAMUSTINE
     Dosage: INFUSION RATE: 136 (FROM 13:30 TO 14:30 HOURS)
     Route: 042
     Dates: start: 20140429, end: 20140429
  59. BENDAMUSTINE [Suspect]
     Active Substance: BENDAMUSTINE
     Dosage: INFUSION RATE: 136 (FROM 13:30 TO 14:30 HOURS)
     Route: 042
     Dates: start: 20140528, end: 20140528
  60. DEKORT [Concomitant]
     Active Substance: DEXAMETHASONE
     Route: 042
     Dates: start: 20140402, end: 20140402
  61. DEKORT [Concomitant]
     Active Substance: DEXAMETHASONE
     Route: 042
     Dates: start: 20140430, end: 20140430
  62. AVIL [Concomitant]
     Active Substance: PHENIRAMINE
     Route: 042
     Dates: start: 20140304, end: 20140305
  63. AVIL [Concomitant]
     Active Substance: PHENIRAMINE
     Route: 042
     Dates: start: 20140401, end: 20140402
  64. AVIL [Concomitant]
     Active Substance: PHENIRAMINE
     Route: 042
     Dates: start: 20140527, end: 20140528
  65. AVIL [Concomitant]
     Active Substance: PHENIRAMINE
     Route: 042
     Dates: start: 20150730, end: 20150730
  66. RANITIDINE [Concomitant]
     Active Substance: RANITIDINE\RANITIDINE HYDROCHLORIDE
     Route: 042
     Dates: start: 20140429, end: 20140429
  67. RANITIDINE [Concomitant]
     Active Substance: RANITIDINE\RANITIDINE HYDROCHLORIDE
     Route: 042
     Dates: start: 20140527, end: 20140527
  68. OMNIPAQUE [Concomitant]
     Active Substance: IOHEXOL
     Dosage: STRENGTH: 350MG/ML
     Route: 042
     Dates: start: 20140929, end: 20140929
  69. OBINUTUZUMAB [Suspect]
     Active Substance: OBINUTUZUMAB
     Dosage: INFUSION RATE: 50 (FROM 11:00 TO 15:00 HOURS)
     Route: 042
     Dates: start: 20140205, end: 20140205
  70. BENDAMUSTINE [Suspect]
     Active Substance: BENDAMUSTINE
     Indication: CHRONIC LYMPHOCYTIC LEUKAEMIA
     Dosage: INFUSION RATE: 135 (FROM 15:00 TO 16:00 HOURS)?LAST DOSE PRIOR TO PNEUMONIA WAS ON 30/APR/2014. LAST
     Route: 042
     Dates: start: 20140204, end: 20140204
  71. BENDAMUSTINE [Suspect]
     Active Substance: BENDAMUSTINE
     Dosage: INFUSION RATE: 270 (FROM 10:00 TO 11:00 HOURS)
     Route: 042
     Dates: start: 20140402, end: 20140402
  72. BENDAMUSTINE [Suspect]
     Active Substance: BENDAMUSTINE
     Dosage: INFUSION RATE: 136 (FROM 13:30 TO 14:30 HOURS)
     Route: 042
     Dates: start: 20140527, end: 20140527
  73. DEKORT [Concomitant]
     Active Substance: DEXAMETHASONE
     Route: 042
     Dates: start: 20140527, end: 20140527
  74. RANITIDINE [Concomitant]
     Active Substance: RANITIDINE\RANITIDINE HYDROCHLORIDE
     Route: 042
     Dates: start: 20140401, end: 20140401
  75. OMNIPAQUE [Concomitant]
     Active Substance: IOHEXOL
     Route: 042
     Dates: start: 20140808, end: 20140808
  76. OBINUTUZUMAB [Suspect]
     Active Substance: OBINUTUZUMAB
     Indication: CHRONIC LYMPHOCYTIC LEUKAEMIA
     Dosage: INFUSION RATE: 6.25 (FROM 12:00 TO 15:00 HOURS) ACTUAL DOSE GIVEN 25MG -REDUCED DUE TO INFUSION REAC
     Route: 042
     Dates: start: 20140204
  77. OBINUTUZUMAB [Suspect]
     Active Substance: OBINUTUZUMAB
     Dosage: INFUSION RATE: 100 (FROM 10:00 TO 13:30 HOURS)
     Route: 042
     Dates: start: 20140218, end: 20140218
  78. BENDAMUSTINE [Suspect]
     Active Substance: BENDAMUSTINE
     Dosage: INFUSION RATE: 136 (FROM 13:30 TO 14:30 HOURS)
     Route: 042
     Dates: start: 20140707, end: 20140707
  79. DEKORT [Concomitant]
     Active Substance: DEXAMETHASONE
     Route: 042
     Dates: start: 20140401, end: 20140401
  80. DEKORT [Concomitant]
     Active Substance: DEXAMETHASONE
     Route: 042
     Dates: start: 20140528, end: 20140528
  81. RANITIDINE [Concomitant]
     Active Substance: RANITIDINE\RANITIDINE HYDROCHLORIDE
     Route: 042
     Dates: start: 20140430, end: 20140430
  82. GRANISETRON [Concomitant]
     Active Substance: GRANISETRON
     Indication: PROPHYLAXIS
     Route: 042
     Dates: start: 20140204, end: 20140205
  83. GRANISETRON [Concomitant]
     Active Substance: GRANISETRON
     Route: 042
     Dates: start: 20140211, end: 20140211
  84. GRANISETRON [Concomitant]
     Active Substance: GRANISETRON
     Route: 042
     Dates: start: 20140304, end: 20140305
  85. UROGRAFIN [Concomitant]
     Active Substance: DIATRIZOATE MEGLUMINE\DIATRIZOATE SODIUM
     Route: 048
     Dates: start: 20150126, end: 20150126
  86. CIPRO [Concomitant]
     Active Substance: CIPROFLOXACIN HYDROCHLORIDE
     Route: 048
     Dates: start: 20141111, end: 20141125
  87. IG VENA [Concomitant]
     Active Substance: HUMAN IMMUNOGLOBULIN G
     Route: 042
     Dates: start: 20150611, end: 20150611
  88. MIACALCIC [Concomitant]
     Active Substance: CALCITONIN SALMON
     Indication: OSTEOPOROSIS
     Route: 048
     Dates: start: 20150618, end: 20150621

REACTIONS (2)
  - Febrile neutropenia [Recovered/Resolved]
  - Pneumonia [Recovered/Resolved]

NARRATIVE: CASE EVENT DATE: 20140510
